FAERS Safety Report 25883698 (Version 1)
Quarter: 2025Q4

REPORT INFORMATION
  Report Type: Spontaneous
  Country: US (occurrence: US)
  Receive Date: 20251006
  Receipt Date: 20251006
  Transmission Date: 20260119
  Serious: No
  Sender: NOVARTIS
  Company Number: US-002147023-NVSC2025US149107

PATIENT
  Sex: Female

DRUGS (2)
  1. NETSPOT [Suspect]
     Active Substance: GALLIUM OXODOTREOTIDE GA-68
     Indication: Product used for unknown indication
     Dosage: UNK, ONCE/SINGLE (5 MILC, INJECTION)
     Route: 065
  2. WEGOVY [Concomitant]
     Active Substance: SEMAGLUTIDE
     Indication: Product used for unknown indication
     Dosage: UNK
     Route: 065

REACTIONS (3)
  - Flatulence [Unknown]
  - Nausea [Unknown]
  - Flushing [Unknown]
